FAERS Safety Report 4644742-1 (Version None)
Quarter: 2005Q2

REPORT INFORMATION
  Report Type: 
  Country: None (occurrence: None)
  Receive Date: 20050422
  Receipt Date: 20050419
  Transmission Date: 20051028
  Serious: Yes (Life-Threatening, Other)
  Sender: FDA-Public Use
  Company Number: HQWYE114319APR05

PATIENT
  Age: 65 Year
  Sex: Female

DRUGS (5)
  1. PANTOPRAZOLE SODIUM [Suspect]
     Indication: GASTROOESOPHAGEAL REFLUX DISEASE
     Dosage: 40 MG 2X PER 1 DAY
     Route: 048
     Dates: start: 20050308, end: 20050312
  2. PANTOPRAZOLE SODIUM [Suspect]
     Indication: HELICOBACTER INFECTION
     Dosage: 40 MG 2X PER 1 DAY
     Route: 048
     Dates: start: 20050308, end: 20050312
  3. AMOXICILLIN [Suspect]
     Indication: GASTROOESOPHAGEAL REFLUX DISEASE
     Dosage: 1000 MG 1X PER 2 DAY
     Route: 048
     Dates: start: 20050308, end: 20050312
  4. AMOXICILLIN [Suspect]
     Indication: HELICOBACTER INFECTION
     Dosage: 1000 MG 1X PER 2 DAY
     Route: 048
     Dates: start: 20050308, end: 20050312
  5. CLARITHROMYCIN [Suspect]
     Indication: GASTROOESOPHAGEAL REFLUX DISEASE
     Dosage: 500 MG 2X PER 1 DAY
     Route: 048
     Dates: start: 20050308, end: 20050312

REACTIONS (4)
  - AGEUSIA [None]
  - ANGIONEUROTIC OEDEMA [None]
  - DYSGEUSIA [None]
  - DYSPNOEA [None]
